FAERS Safety Report 8444583-3 (Version None)
Quarter: 2012Q2

REPORT INFORMATION
  Report Type: 
  Country: None (occurrence: None)
  Receive Date: 20120618
  Receipt Date: 20120611
  Transmission Date: 20120825
  Serious: Yes (Other)
  Sender: FDA-Public Use
  Company Number: US-TEVA-342576USA

PATIENT
  Sex: Female

DRUGS (1)
  1. NUVIGIL [Suspect]
     Route: 048

REACTIONS (4)
  - LIP DISORDER [None]
  - CONTUSION [None]
  - TRANSIENT ISCHAEMIC ATTACK [None]
  - ACNE [None]
